FAERS Safety Report 9109426 (Version 5)
Quarter: 2018Q2

REPORT INFORMATION
  Report Type: Report from Study
  Country: IN (occurrence: IN)
  Receive Date: 20130222
  Receipt Date: 20180515
  Transmission Date: 20180711
  Serious: Yes (Hospitalization)
  Sender: FDA-Public Use
  Company Number: PHHO2013IN002508

PATIENT
  Age: 37 Year
  Sex: Male
  Weight: 65.7 kg

DRUGS (4)
  1. PREDNISOLONE SANDOZ [Suspect]
     Active Substance: PREDNISOLONE
     Indication: CHEMOTHERAPY
     Dosage: 100 MG, UNK
     Route: 048
     Dates: start: 20120920
  2. VINCRISTINE [Suspect]
     Active Substance: VINCRISTINE
     Indication: CHEMOTHERAPY
     Dosage: 1.4 MG/M2, UNK
     Route: 042
     Dates: start: 20120920
  3. CYCLOPHOSPHAMIDE. [Suspect]
     Active Substance: CYCLOPHOSPHAMIDE
     Indication: CHEMOTHERAPY
     Dosage: 750 MG/M2, UNK
     Route: 042
     Dates: start: 20120920
  4. GP2013 [Suspect]
     Active Substance: RITUXIMAB
     Indication: NON-HODGKIN^S LYMPHOMA
     Dosage: 375 MG/M2, UNK
     Route: 042
     Dates: start: 20120920

REACTIONS (1)
  - Neutropenia [Recovered/Resolved]

NARRATIVE: CASE EVENT DATE: 20130212
